FAERS Safety Report 6457269-1 (Version None)
Quarter: 2009Q4

REPORT INFORMATION
  Report Type: 
  Country: None (occurrence: None)
  Receive Date: 20091125
  Receipt Date: 20091116
  Transmission Date: 20100525
  Serious: Yes (Other)
  Sender: FDA-Public Use
  Company Number: US-PFIZER INC-2009298533

PATIENT
  Age: 43 Year
  Sex: Male

DRUGS (6)
  1. VFEND [Suspect]
     Dosage: 200 MG, 2X/DAY
  2. MYCOPHENOLATE MOFETIL [Concomitant]
  3. SIROLIMUS [Concomitant]
  4. SULFAMETHOXAZOLE AND TRIMETHOPRIM [Concomitant]
  5. CYCLOSPORINE [Concomitant]
  6. PREDNISONE TAB [Suspect]

REACTIONS (2)
  - PHOTOSENSITIVITY REACTION [None]
  - SQUAMOUS CELL CARCINOMA [None]
